FAERS Safety Report 9228044 (Version 2)
Quarter: 2013Q4

REPORT INFORMATION
  Report Type: Spontaneous
  Country: US (occurrence: US)
  Receive Date: 20130412
  Receipt Date: 20131101
  Transmission Date: 20140711
  Serious: Yes (Hospitalization, Other)
  Sender: FDA-Public Use
  Company Number: US-BAYER-2013-044530

PATIENT
  Age: 24 Year
  Sex: Female

DRUGS (10)
  1. YAZ [Suspect]
     Dosage: UNK
     Dates: start: 2007, end: 2008
  2. YASMIN [Suspect]
     Dosage: UNK
     Dates: start: 2007, end: 2008
  3. OCELLA [Suspect]
     Dosage: UNK
     Dates: start: 2007, end: 2008
  4. SINGULAIR [Concomitant]
     Indication: ASTHMA
  5. SEROQUEL [Concomitant]
  6. LEXAPRO [Concomitant]
  7. CITALOPRAM [Concomitant]
  8. BUPROPION [Concomitant]
  9. INVEGA [Concomitant]
  10. CELEXA [Concomitant]
     Indication: DEPRESSION

REACTIONS (10)
  - Deep vein thrombosis [None]
  - Thrombosis [None]
  - Thrombophlebitis superficial [None]
  - Abdominal pain [None]
  - Injury [None]
  - Pain [None]
  - General physical health deterioration [None]
  - Emotional distress [None]
  - Anxiety [None]
  - Pain [None]
